FAERS Safety Report 24692931 (Version 1)
Quarter: 2024Q4

REPORT INFORMATION
  Report Type: Spontaneous
  Country: DE (occurrence: DE)
  Receive Date: 20241203
  Receipt Date: 20241203
  Transmission Date: 20250115
  Serious: Yes (Hospitalization, Other)
  Sender: COOPERSURGICAL
  Company Number: DE-COOPERSURGICAL, INC.-2024CPS003711

PATIENT
  Age: 30 Year
  Sex: Female

DRUGS (1)
  1. COPPER [Suspect]
     Active Substance: COPPER
     Indication: Contraception
     Dosage: UNK
     Route: 015
     Dates: start: 2017, end: 2024

REACTIONS (3)
  - Calculus bladder [Recovered/Resolved]
  - Embedded device [Recovered/Resolved]
  - Device dislocation [Recovered/Resolved]

NARRATIVE: CASE EVENT DATE: 20220101
